FAERS Safety Report 5994748-5 (Version None)
Quarter: 2008Q4

REPORT INFORMATION
  Report Type: 
  Country: None (occurrence: None)
  Receive Date: 20081212
  Receipt Date: 20080915
  Transmission Date: 20090506
  Serious: No
  Sender: FDA-Public Use
  Company Number: US-ABBOTT-08P-163-0476048-00

PATIENT
  Sex: Male
  Weight: 118.95 kg

DRUGS (7)
  1. HUMIRA [Suspect]
     Indication: COLITIS ULCERATIVE
     Route: 058
     Dates: start: 20080818, end: 20080818
  2. HUMIRA [Suspect]
     Route: 048
     Dates: start: 20080902, end: 20080902
  3. HUMIRA [Suspect]
     Route: 058
  4. COLAZOL [Concomitant]
     Indication: COLITIS ULCERATIVE
  5. CHOLESTYRAMINE [Concomitant]
     Indication: BLOOD CHOLESTEROL
  6. CETIRIZINE HYDROCHLORIDE [Concomitant]
     Indication: HYPERSENSITIVITY
  7. ESOMEPRAZOLE MAGNESIUM [Concomitant]
     Indication: GASTROOESOPHAGEAL REFLUX DISEASE

REACTIONS (5)
  - ANXIETY [None]
  - CHEST DISCOMFORT [None]
  - FEELING HOT [None]
  - FLUSHING [None]
  - PALPITATIONS [None]
